FAERS Safety Report 12474244 (Version 2)
Quarter: 2016Q3

REPORT INFORMATION
  Report Type: Spontaneous
  Country: GB (occurrence: GB)
  Receive Date: 20160617
  Receipt Date: 20160720
  Transmission Date: 20161109
  Serious: Yes (Other)
  Sender: FDA-Public Use
  Company Number: GB-ROCHE-1650583

PATIENT
  Sex: Female

DRUGS (3)
  1. HERCEPTIN [Suspect]
     Active Substance: TRASTUZUMAB
     Indication: PRODUCT USED FOR UNKNOWN INDICATION
     Route: 058
  2. HERCEPTIN [Suspect]
     Active Substance: TRASTUZUMAB
     Indication: PRODUCT USED FOR UNKNOWN INDICATION
     Route: 042
  3. PERJETA [Suspect]
     Active Substance: PERTUZUMAB
     Indication: PRODUCT USED FOR UNKNOWN INDICATION
     Route: 042

REACTIONS (16)
  - Dyspnoea exertional [Not Recovered/Not Resolved]
  - Visual impairment [Unknown]
  - Food poisoning [Recovered/Resolved]
  - Fall [Unknown]
  - Paraesthesia [Unknown]
  - Sleep disorder [Unknown]
  - Asthenia [Unknown]
  - Diarrhoea [Unknown]
  - Visual field defect [Unknown]
  - Vomiting [Unknown]
  - Musculoskeletal chest pain [Recovering/Resolving]
  - Night sweats [Unknown]
  - Rash [Unknown]
  - Fatigue [Unknown]
  - Mouth ulceration [Unknown]
  - Insomnia [Unknown]
